FAERS Safety Report 7161796-1 (Version None)
Quarter: 2010Q4

REPORT INFORMATION
  Report Type: 
  Country: None (occurrence: None)
  Receive Date: 20101215
  Receipt Date: 20101206
  Transmission Date: 20110411
  Serious: Yes (Hospitalization, Other)
  Sender: FDA-Public Use
  Company Number: LT-ASTRAZENECA-2010SE57818

PATIENT
  Age: 35 Year
  Sex: Female
  Weight: 65 kg

DRUGS (1)
  1. BETALOC ZOK [Suspect]
     Indication: SUICIDE ATTEMPT
     Dosage: 10-11 TABLETS
     Route: 048
     Dates: start: 20100926, end: 20100926

REACTIONS (2)
  - OVERDOSE [None]
  - TACHYCARDIA [None]
